FAERS Safety Report 23635188 (Version 1)
Quarter: 2024Q1

REPORT INFORMATION
  Report Type: Spontaneous
  Country: US (occurrence: US)
  Receive Date: 20240315
  Receipt Date: 20240315
  Transmission Date: 20240409
  Serious: No
  Sender: FDA-Public Use
  Company Number: US-002147023-NVSC2024US051611

PATIENT
  Sex: Male

DRUGS (1)
  1. COSENTYX [Suspect]
     Active Substance: SECUKINUMAB
     Indication: Product used for unknown indication
     Dosage: 150 MG 2X, QMO
     Route: 065

REACTIONS (4)
  - Condition aggravated [Unknown]
  - Inflammation [Unknown]
  - Weight decreased [Unknown]
  - Drug ineffective [Unknown]
